FAERS Safety Report 7204128-2 (Version None)
Quarter: 2010Q4

REPORT INFORMATION
  Report Type: 
  Country: None (occurrence: None)
  Receive Date: 20101230
  Receipt Date: 20101220
  Transmission Date: 20110411
  Serious: Yes (Life-Threatening, Hospitalization)
  Sender: FDA-Public Use
  Company Number: TR-GILEAD-2010-0032646

PATIENT
  Sex: Female
  Weight: 75 kg

DRUGS (1)
  1. VIREAD [Suspect]
     Indication: HEPATITIS B
     Route: 048
     Dates: start: 20100210, end: 20101015

REACTIONS (2)
  - OVERDOSE [None]
  - SUICIDAL IDEATION [None]
